FAERS Safety Report 9419172 (Version 1)
Quarter: 2013Q3

REPORT INFORMATION
  Report Type: Spontaneous
  Country: US (occurrence: None)
  Receive Date: 20130722
  Receipt Date: 20130722
  Transmission Date: 20140515
  Serious: Yes (Hospitalization, Other)
  Sender: FDA-Public Use
  Company Number: None

PATIENT
  Age: 32 Year
  Sex: Female

DRUGS (6)
  1. TECFIDERA [Suspect]
  2. LEXAPRO [Concomitant]
  3. VITAMIN D [Concomitant]
  4. TRIVORA [Concomitant]
  5. SYNTHROID [Concomitant]
  6. CYTOMEL [Concomitant]

REACTIONS (6)
  - Urticaria [None]
  - Pyrexia [None]
  - Headache [None]
  - Diarrhoea [None]
  - Joint swelling [None]
  - Erythema [None]
